FAERS Safety Report 8730543 (Version 4)
Quarter: 2012Q4

REPORT INFORMATION
  Report Type: 
  Country: US (occurrence: US)
  Receive Date: 20120817
  Receipt Date: 20121204
  Transmission Date: 20130627
  Serious: No
  Sender: FDA-Public Use
  Company Number: US-ASTRAZENECA-2007UW06892

PATIENT
  Age: 94 Year
  Sex: Female

DRUGS (2)
  1. NEXIUM [Suspect]
     Route: 048
  2. NEXIUM [Suspect]
     Route: 048

REACTIONS (7)
  - Eye disorder [Unknown]
  - Visual impairment [Unknown]
  - Adverse event [Unknown]
  - Dyspepsia [Unknown]
  - Abdominal pain upper [Unknown]
  - Intentional drug misuse [Unknown]
  - Drug dose omission [Unknown]
